FAERS Safety Report 4850705-3 (Version None)
Quarter: 2005Q4

REPORT INFORMATION
  Report Type: 
  Country: None (occurrence: None)
  Receive Date: 20051212
  Receipt Date: 20051205
  Transmission Date: 20060501
  Serious: Yes (Hospitalization)
  Sender: FDA-Public Use
  Company Number: 2005UW18285

PATIENT
  Age: 60 Year
  Sex: Male
  Weight: 92.7 kg

DRUGS (14)
  1. GEFITINIB [Suspect]
     Indication: GLIOBLASTOMA MULTIFORME
     Route: 048
     Dates: start: 20051124
  2. RAD 001 [Suspect]
     Indication: GLIOBLASTOMA MULTIFORME
     Route: 048
     Dates: start: 20051118
  3. GLUCOPHAGE [Concomitant]
  4. LIPITOR [Concomitant]
  5. REGLAN [Concomitant]
  6. DECADRON [Concomitant]
  7. ALTACE [Concomitant]
  8. COLACE [Concomitant]
  9. NIASPAN [Concomitant]
  10. GLUCOTROL [Concomitant]
  11. HYDROCHLOROTHIAZIDE [Concomitant]
  12. TRICOR [Concomitant]
  13. ATENOLOL [Concomitant]
  14. ASPIRIN [Concomitant]

REACTIONS (1)
  - HYDROCEPHALUS [None]
